FAERS Safety Report 4840696-3 (Version None)
Quarter: 2005Q4

REPORT INFORMATION
  Report Type: 
  Country: None (occurrence: None)
  Receive Date: 20051130
  Receipt Date: 20051117
  Transmission Date: 20060501
  Serious: Yes (Hospitalization)
  Sender: FDA-Public Use
  Company Number: FR-JNJFOC-20051104598

PATIENT
  Sex: Male

DRUGS (6)
  1. RISPERDAL CONSTA [Suspect]
     Route: 030
  2. RISPERDAL [Concomitant]
     Route: 048
  3. RISPERDAL [Concomitant]
     Route: 048
  4. RISPERDAL [Concomitant]
     Route: 048
  5. RISPERDAL [Concomitant]
     Route: 048
  6. RISPERDAL [Concomitant]
     Dosage: PRIOR TO ENROLLMENT IN STUDY
     Route: 048

REACTIONS (3)
  - DELUSION [None]
  - DISSOCIATION [None]
  - DRUG ABUSER [None]
